FAERS Safety Report 18707172 (Version 18)
Quarter: 2025Q1

REPORT INFORMATION
  Report Type: Report from Study
  Country: US (occurrence: US)
  Receive Date: 20210106
  Receipt Date: 20250210
  Transmission Date: 20250409
  Serious: Yes (Hospitalization, Other)
  Sender: TAKEDA
  Company Number: US-TAKEDA-US202018007

PATIENT
  Age: 23 Year
  Sex: Male
  Weight: 53 kg

DRUGS (39)
  1. IDURSULFASE [Suspect]
     Active Substance: IDURSULFASE
     Indication: Mucopolysaccharidosis II
     Dosage: 30 MILLIGRAM, 1/WEEK
     Dates: start: 20100412
  2. IDURSULFASE [Suspect]
     Active Substance: IDURSULFASE
     Dosage: 30 MILLIGRAM, 1/WEEK
     Dates: start: 20100428
  3. PREDNISONE [Suspect]
     Active Substance: PREDNISONE
     Indication: Product used for unknown indication
  4. HEPARIN [Concomitant]
     Active Substance: HEPARIN SODIUM
     Indication: Product used for unknown indication
  5. CORICIDIN HBP COLD AND FLU [Concomitant]
     Active Substance: ACETAMINOPHEN\CHLORPHENIRAMINE MALEATE
     Indication: Product used for unknown indication
  6. ALBUTEROL SULFATE [Concomitant]
     Active Substance: ALBUTEROL SULFATE
     Indication: Product used for unknown indication
  7. POLYETHYLENE GLYCOL [Concomitant]
     Active Substance: POLYETHYLENE GLYCOL
     Indication: Product used for unknown indication
  8. BUDESONIDE [Concomitant]
     Active Substance: BUDESONIDE
     Indication: Product used for unknown indication
  9. EPINEPHRINE [Concomitant]
     Active Substance: EPINEPHRINE
     Indication: Product used for unknown indication
  10. SODIUM CHLORIDE [Concomitant]
     Active Substance: SODIUM CHLORIDE
     Indication: Product used for unknown indication
  11. NYSTATIN [Concomitant]
     Active Substance: NYSTATIN
     Indication: Product used for unknown indication
  12. TRIAMCINOLONE ACETONIDE [Concomitant]
     Active Substance: TRIAMCINOLONE ACETONIDE
     Indication: Product used for unknown indication
  13. SINGULAIR [Concomitant]
     Active Substance: MONTELUKAST SODIUM
     Indication: Product used for unknown indication
  14. OXYGEN [Concomitant]
     Active Substance: OXYGEN
     Indication: Product used for unknown indication
  15. SODIUM CHLORIDE [Concomitant]
     Active Substance: SODIUM CHLORIDE
     Indication: Product used for unknown indication
  16. SENNA LEAF [Concomitant]
     Active Substance: SENNA LEAF
     Indication: Product used for unknown indication
  17. CLONIDINE HYDROCHLORIDE [Concomitant]
     Active Substance: CLONIDINE HYDROCHLORIDE
     Indication: Product used for unknown indication
  18. PYRIDOXINE HYDROCHLORIDE [Concomitant]
     Active Substance: PYRIDOXINE HYDROCHLORIDE
     Indication: Product used for unknown indication
  19. ENALAPRIL MALEATE [Concomitant]
     Active Substance: ENALAPRIL MALEATE
  20. MIRALAX [Concomitant]
     Active Substance: POLYETHYLENE GLYCOL 3350
     Indication: Product used for unknown indication
  21. DIASTAT ACUDIAL [Concomitant]
     Active Substance: DIAZEPAM
     Indication: Product used for unknown indication
  22. LEVETIRACETAM [Concomitant]
     Active Substance: LEVETIRACETAM
     Indication: Product used for unknown indication
  23. MUPIROCIN [Concomitant]
     Active Substance: MUPIROCIN
     Indication: Product used for unknown indication
  24. ISRADIPINE [Concomitant]
     Active Substance: ISRADIPINE
     Indication: Product used for unknown indication
  25. MELATONIN [Concomitant]
     Active Substance: MELATONIN
     Indication: Product used for unknown indication
  26. PULMICORT TURBUHALER [Concomitant]
     Active Substance: BUDESONIDE
     Indication: Product used for unknown indication
  27. AUGMENTIN [Concomitant]
     Active Substance: AMOXICILLIN\CLAVULANATE POTASSIUM
     Indication: Product used for unknown indication
  28. ALLEGRA ALLERGY [Concomitant]
     Active Substance: FEXOFENADINE HYDROCHLORIDE
  29. FEXOFENADINE HYDROCHLORIDE [Concomitant]
     Active Substance: FEXOFENADINE HYDROCHLORIDE
  30. POLYETHYLENE GLYCOLS [Concomitant]
     Active Substance: POLYETHYLENE GLYCOLS
  31. ALBUTEROL [Concomitant]
     Active Substance: ALBUTEROL
  32. SENNA [Concomitant]
     Active Substance: SENNOSIDES
  33. NASONEX [Concomitant]
     Active Substance: MOMETASONE FUROATE
  34. KEPPRA [Concomitant]
     Active Substance: LEVETIRACETAM
  35. ATROVENT HFA [Concomitant]
     Active Substance: IPRATROPIUM BROMIDE
  36. VALTOCO [Concomitant]
     Active Substance: DIAZEPAM
  37. FLONASE ALLERGY RELIEF [Concomitant]
     Active Substance: FLUTICASONE PROPIONATE
  38. VITAMIN B [Concomitant]
     Active Substance: VITAMIN B
  39. CEFDINIR [Concomitant]
     Active Substance: CEFDINIR

REACTIONS (18)
  - Generalised tonic-clonic seizure [Unknown]
  - Upper respiratory tract infection [Unknown]
  - Influenza [Unknown]
  - Respiratory symptom [Unknown]
  - Seizure [Unknown]
  - Respiratory tract infection [Unknown]
  - Productive cough [Unknown]
  - Sinusitis [Unknown]
  - Respiratory tract congestion [Unknown]
  - Oxygen saturation decreased [Recovered/Resolved]
  - Body temperature abnormal [Unknown]
  - Heart rate increased [Unknown]
  - Heart rate decreased [Unknown]
  - Infusion site erythema [Unknown]
  - Cough [Recovered/Resolved]
  - Dyspnoea [Recovered/Resolved]
  - Face oedema [Unknown]
  - Erythema [Unknown]

NARRATIVE: CASE EVENT DATE: 20230813
